FAERS Safety Report 12451313 (Version 1)
Quarter: 2016Q2

REPORT INFORMATION
  Report Type: Spontaneous
  Country: US (occurrence: None)
  Receive Date: 20160608
  Receipt Date: 20160608
  Transmission Date: 20160815
  Serious: Yes (Life-Threatening)
  Sender: FDA-Public Use
  Company Number: None

PATIENT
  Age: 70 Year
  Sex: Female
  Weight: 42.64 kg

DRUGS (1)
  1. NOXAFIL [Suspect]
     Active Substance: POSACONAZOLE
     Indication: HISTOPLASMOSIS
     Dosage: STRENGTH 100 MG. ?QUANITY - 60 TABLETS?FREQUENCY 4 TWICE DAILY TAKEN BY MOUTH
     Route: 048
     Dates: start: 20160505, end: 20160508

REACTIONS (27)
  - Arrhythmia [None]
  - Headache [None]
  - Peripheral swelling [None]
  - Feeling abnormal [None]
  - Hypertension [None]
  - Tremor [None]
  - Hallucination [None]
  - Dizziness [None]
  - Insomnia [None]
  - Eye pain [None]
  - Skin exfoliation [None]
  - Mental disorder [None]
  - Tendon pain [None]
  - Finger deformity [None]
  - Syncope [None]
  - Sensory disturbance [None]
  - Confusional state [None]
  - Ear pain [None]
  - Visual impairment [None]
  - Diplopia [None]
  - Myositis [None]
  - Mass [None]
  - Dyspnoea [None]
  - Vision blurred [None]
  - Nausea [None]
  - Muscle spasms [None]
  - Erythema [None]

NARRATIVE: CASE EVENT DATE: 20160506
